FAERS Safety Report 8409112-9 (Version None)
Quarter: 2012Q2

REPORT INFORMATION
  Report Type: 
  Country: None (occurrence: None)
  Receive Date: 20120604
  Receipt Date: 20120522
  Transmission Date: 20120825
  Serious: Yes (Hospitalization, Other)
  Sender: FDA-Public Use
  Company Number: US-AMGEN-USASP2012028160

PATIENT
  Age: 77 Year
  Sex: Female

DRUGS (5)
  1. DECITABINE [Concomitant]
     Dosage: 20 MG, Q6WK
  2. PROCRIT [Suspect]
     Indication: 5Q MINUS SYNDROME
     Dosage: UNK
  3. REVLIMID [Concomitant]
  4. NEULASTA [Suspect]
     Indication: PRODUCT USED FOR UNKNOWN INDICATION
  5. ARANESP [Suspect]
     Indication: PRODUCT USED FOR UNKNOWN INDICATION

REACTIONS (8)
  - ANTIBODY TEST POSITIVE [None]
  - NEUROPATHY PERIPHERAL [None]
  - THERAPEUTIC RESPONSE DECREASED [None]
  - LEUKOPENIA [None]
  - DRUG INEFFECTIVE [None]
  - BONE MARROW DISORDER [None]
  - PULMONARY EMBOLISM [None]
  - THROMBOCYTOSIS [None]
